FAERS Safety Report 8572019-0 (Version None)
Quarter: 2012Q3

REPORT INFORMATION
  Report Type: 
  Country: None (occurrence: None)
  Receive Date: 20120806
  Receipt Date: 20120727
  Transmission Date: 20120928
  Serious: Yes (Hospitalization)
  Sender: FDA-Public Use
  Company Number: IT-BRISTOL-MYERS SQUIBB COMPANY-16812380

PATIENT
  Age: 67 Year
  Sex: Male

DRUGS (1)
  1. COUMADIN [Suspect]
     Indication: ANTICOAGULANT THERAPY
     Dates: start: 20120101, end: 20120713

REACTIONS (2)
  - HAEMATURIA [None]
  - DYSURIA [None]
